FAERS Safety Report 9345381 (Version 1)
Quarter: 2013Q2

REPORT INFORMATION
  Report Type: Spontaneous
  Country: DK (occurrence: DK)
  Receive Date: 20130613
  Receipt Date: 20130613
  Transmission Date: 20140414
  Serious: Yes (Other)
  Sender: FDA-Public Use
  Company Number: DK-AMGEN-DNKSP2010013572

PATIENT
  Age: 45 Year
  Sex: Female

DRUGS (1)
  1. PROLIA [Suspect]
     Indication: PRODUCT USED FOR UNKNOWN INDICATION
     Dosage: 60 MG, ONE TIME DOSE

REACTIONS (19)
  - Dysgeusia [Recovering/Resolving]
  - Flank pain [Recovered/Resolved]
  - Loose tooth [Recovering/Resolving]
  - Injection site pain [Recovered/Resolved]
  - Limb discomfort [Recovered/Resolved]
  - Abdominal distension [Recovered/Resolved]
  - Subcutaneous abscess [Recovered/Resolved]
  - Muscular weakness [Recovering/Resolving]
  - Musculoskeletal chest pain [Recovering/Resolving]
  - Sensory disturbance [Recovering/Resolving]
  - Paraesthesia [Recovering/Resolving]
  - Tooth infection [Recovered/Resolved]
  - Renal pain [Recovering/Resolving]
  - Pollakiuria [Recovering/Resolving]
  - Alopecia [Recovering/Resolving]
  - Otorrhoea [Recovering/Resolving]
  - Myalgia [Recovering/Resolving]
  - Arthralgia [Recovering/Resolving]
  - Pain in extremity [Recovered/Resolved]
